FAERS Safety Report 7595804-0 (Version None)
Quarter: 2011Q3

REPORT INFORMATION
  Report Type: 
  Country: None (occurrence: None)
  Receive Date: 20110707
  Receipt Date: 20110624
  Transmission Date: 20111222
  Serious: Yes (Hospitalization)
  Sender: FDA-Public Use
  Company Number: US-JNJFOC-20110611564

PATIENT
  Sex: Female
  Weight: 86.18 kg

DRUGS (4)
  1. METHOTREXATE [Suspect]
     Indication: RHEUMATOID ARTHRITIS
     Dates: end: 20101201
  2. REMICADE [Suspect]
     Indication: RHEUMATOID ARTHRITIS
     Route: 042
     Dates: start: 20110301
  3. REMICADE [Suspect]
     Route: 042
     Dates: start: 20090101
  4. LASIX [Concomitant]
     Dates: end: 20110501

REACTIONS (10)
  - MALAISE [None]
  - TENDONITIS [None]
  - MENIERE'S DISEASE [None]
  - HYPOKALAEMIA [None]
  - ANKLE FRACTURE [None]
  - FALL [None]
  - BLOOD SODIUM DECREASED [None]
  - ASTHENIA [None]
  - MYELODYSPLASTIC SYNDROME [None]
  - JOINT DISLOCATION [None]
